FAERS Safety Report 4711949-4 (Version None)
Quarter: 2005Q2

REPORT INFORMATION
  Report Type: 
  Country: None (occurrence: None)
  Receive Date: 20050629
  Receipt Date: 20050311
  Transmission Date: 20051028
  Serious: No
  Sender: FDA-Public Use
  Company Number: 05P-163-0293657-00

PATIENT
  Sex: Female
  Weight: 72.5755 kg

DRUGS (3)
  1. HUMIRA [Suspect]
     Indication: POLYMYALGIA RHEUMATICA
     Dosage: 40 MG, 1 IN 2 WK, SUBCUTANEOUS
     Route: 058
     Dates: start: 20030101
  2. LEVOTHYROXINE SODIUM [Concomitant]
  3. CALCIUM GLUCONATE [Concomitant]

REACTIONS (3)
  - CATARACT [None]
  - DRUG EFFECT DECREASED [None]
  - THERAPEUTIC RESPONSE UNEXPECTED [None]
